FAERS Safety Report 6050669-3 (Version None)
Quarter: 2009Q1

REPORT INFORMATION
  Report Type: 
  Country: None (occurrence: None)
  Receive Date: 20090126
  Receipt Date: 20090119
  Transmission Date: 20090719
  Serious: Yes (Hospitalization)
  Sender: FDA-Public Use
  Company Number: US-ELI_LILLY_AND_COMPANY-US200901003292

PATIENT
  Age: 53 Year
  Sex: Male

DRUGS (1)
  1. HUMULIN R [Suspect]
     Dates: start: 20081001

REACTIONS (2)
  - HOSPITALISATION [None]
  - INCORRECT DOSE ADMINISTERED [None]
